FAERS Safety Report 21265800 (Version 1)
Quarter: 2022Q3

REPORT INFORMATION
  Report Type: Spontaneous
  Country: US (occurrence: None)
  Receive Date: 20220828
  Receipt Date: 20220828
  Transmission Date: 20221027
  Serious: Yes (Hospitalization)
  Sender: FDA-Public Use
  Company Number: None

PATIENT
  Age: 51 Year
  Sex: Female
  Weight: 76.95 kg

DRUGS (6)
  1. KEYTRUDA [Suspect]
     Active Substance: PEMBROLIZUMAB
     Indication: Breast cancer
     Dosage: OTHER FREQUENCY : 1ST TIME;?
     Route: 042
     Dates: start: 20220811, end: 20220811
  2. SYNTHROID [Concomitant]
     Active Substance: LEVOTHYROXINE SODIUM
  3. CALCIUM [Concomitant]
     Active Substance: CALCIUM
  4. ZINC [Concomitant]
     Active Substance: ZINC
  5. VITAMIN D [Concomitant]
     Active Substance: VITAMIN D NOS
  6. PREDNISONE [Concomitant]
     Active Substance: PREDNISONE

REACTIONS (6)
  - Rash [None]
  - Pyrexia [None]
  - Pruritus [None]
  - Oral pain [None]
  - Treatment delayed [None]
  - Neoplasm recurrence [None]

NARRATIVE: CASE EVENT DATE: 20220811
